FAERS Safety Report 7420900-8 (Version None)
Quarter: 2011Q2

REPORT INFORMATION
  Report Type: 
  Country: None (occurrence: None)
  Receive Date: 20110418
  Receipt Date: 20110408
  Transmission Date: 20111010
  Serious: Yes (Other)
  Sender: FDA-Public Use
  Company Number: A0923081A

PATIENT
  Sex: Female

DRUGS (2)
  1. VOTRIENT [Suspect]
     Indication: LUNG NEOPLASM MALIGNANT
     Dosage: 400MG PER DAY
     Route: 065
  2. AFINITOR [Suspect]
     Dosage: 10MG PER DAY
     Route: 065

REACTIONS (4)
  - EPISTAXIS [None]
  - THROMBOCYTOPENIA [None]
  - FATIGUE [None]
  - OFF LABEL USE [None]
